FAERS Safety Report 5073140-4 (Version None)
Quarter: 2006Q3

REPORT INFORMATION
  Report Type: 
  Country: None (occurrence: None)
  Receive Date: 20060711
  Receipt Date: 20060414
  Transmission Date: 20061208
  Serious: No
  Sender: FDA-Public Use
  Company Number: 2006S1000079

PATIENT
  Age: 71 Year
  Sex: Female
  Weight: 65 kg

DRUGS (14)
  1. CUBICIN [Suspect]
     Indication: STAPHYLOCOCCAL OSTEOMYELITIS
     Dosage: 260 MG;Q24H;IV
     Route: 042
  2. CUBICIN [Suspect]
     Indication: WOUND INFECTION STAPHYLOCOCCAL
     Dosage: 260 MG;Q24H;IV
     Route: 042
  3. FAMOTIDINE [Suspect]
     Dates: end: 20060401
  4. VANCOMYCIN [Concomitant]
  5. RIFAMPIN [Concomitant]
  6. CEFEPIME [Concomitant]
  7. MORPHINE [Concomitant]
  8. LOVENOX [Concomitant]
  9. FENTANYL [Concomitant]
  10. METHYLPREDNISOLONE [Concomitant]
  11. FAMOTIDINE [Concomitant]
  12. METOPROLOL TARTRATE [Concomitant]
  13. METOCLOPRAMIDE [Concomitant]
  14. FLUCONAZOLE [Concomitant]

REACTIONS (2)
  - LEUKOPENIA [None]
  - NEUTROPENIA [None]
